FAERS Safety Report 6453090-9 (Version None)
Quarter: 2009Q4

REPORT INFORMATION
  Report Type: 
  Country: None (occurrence: None)
  Receive Date: 20091117
  Receipt Date: 20091106
  Transmission Date: 20100525
  Serious: Yes (Hospitalization)
  Sender: FDA-Public Use
  Company Number: SPV1-2009-01685

PATIENT
  Age: 84 Year
  Sex: Male

DRUGS (9)
  1. FOSRENOL [Suspect]
     Indication: HYPERPHOSPHATAEMIA
  2. TEMESTA /00273201/ (LORAZEPAM) [Concomitant]
  3. PREVISCAN /00789001/ (FLUINDIONE) [Concomitant]
  4. IRBESARTAN [Concomitant]
  5. ROCALTROL [Concomitant]
  6. FOLINORAL (CALCIUM FOLINATE) [Concomitant]
  7. VITAMINAS B12 (CYANOCBALAMIN) [Concomitant]
  8. VASTAREL (TRIMETAZIDINE HYDROCHLORIDE) [Concomitant]
  9. NEXIUM [Concomitant]

REACTIONS (6)
  - BLOOD CREATININE INCREASED [None]
  - CONFUSIONAL STATE [None]
  - GAIT DISTURBANCE [None]
  - HEMIPARESIS [None]
  - HYPOPHOSPHATAEMIA [None]
  - SEPSIS [None]
